FAERS Safety Report 16736951 (Version 4)
Quarter: 2020Q1

REPORT INFORMATION
  Report Type: Report from Study
  Country: NL (occurrence: NL)
  Receive Date: 20190823
  Receipt Date: 20200214
  Transmission Date: 20200409
  Serious: Yes (Other)
  Sender: FDA-Public Use
  Company Number: NL-BAUSCH-BL-2019-023591

PATIENT
  Age: 60 Year
  Sex: Male
  Weight: 60 kg

DRUGS (4)
  1. KYPROLIS [Suspect]
     Active Substance: CARFILZOMIB
     Indication: PLASMA CELL MYELOMA
     Dosage: 34 MG (27 MG/SQ. METER) VIAL-LYOPHILIZED
     Route: 042
     Dates: start: 20190226
  2. KYPROLIS [Suspect]
     Active Substance: CARFILZOMIB
     Dosage: VIAL-LYOPHILIZED
     Route: 042
     Dates: start: 20200114
  3. DEXAMETHASON [Suspect]
     Active Substance: DEXAMETHASONE
     Indication: PLASMA CELL MYELOMA
     Route: 065
  4. LENALIDOMIDE [Suspect]
     Active Substance: LENALIDOMIDE
     Indication: PLASMA CELL MYELOMA
     Route: 048

REACTIONS (1)
  - Leukopenia [Not Recovered/Not Resolved]

NARRATIVE: CASE EVENT DATE: 20190801
